FAERS Safety Report 15426856 (Version 1)
Quarter: 2018Q3

REPORT INFORMATION
  Report Type: Spontaneous
  Country: US (occurrence: US)
  Receive Date: 20180925
  Receipt Date: 20180925
  Transmission Date: 20181010
  Serious: No
  Sender: FDA-Public Use
  Company Number: US-INDIVIOR LIMITED-INDV-108146-2018

PATIENT
  Age: 27 Year
  Sex: Female

DRUGS (2)
  1. SUBOXONE [Suspect]
     Active Substance: BUPRENORPHINE HYDROCHLORIDE\NALOXONE HYDROCHLORIDE
     Indication: PAIN
     Dosage: 2MG, UNK
     Route: 065
     Dates: start: 2017
  2. SUBOXONE [Suspect]
     Active Substance: BUPRENORPHINE HYDROCHLORIDE\NALOXONE HYDROCHLORIDE
     Dosage: QUARTER OF A FILM, UNK
     Route: 065
     Dates: end: 20180116

REACTIONS (6)
  - Anxiety [Recovering/Resolving]
  - Off label use [Recovered/Resolved]
  - Feeling cold [Recovering/Resolving]
  - Intentional underdose [Recovered/Resolved]
  - Drug withdrawal syndrome [Recovering/Resolving]
  - Wrong technique in product usage process [Recovered/Resolved]

NARRATIVE: CASE EVENT DATE: 2017
